FAERS Safety Report 9645703 (Version 2)
Quarter: 2013Q4

REPORT INFORMATION
  Report Type: Report from Study
  Country: DE (occurrence: ES)
  Receive Date: 20131025
  Receipt Date: 20131025
  Transmission Date: 20140711
  Serious: Yes (Hospitalization, Other)
  Sender: FDA-Public Use
  Company Number: DE-ABBVIE-13P-062-1149254-00

PATIENT
  Age: 49 Year
  Sex: Male

DRUGS (1)
  1. HUMIRA [Suspect]
     Indication: COLITIS ULCERATIVE
     Route: 058
     Dates: start: 20130305, end: 20130917

REACTIONS (6)
  - Ulcerative keratitis [Not Recovered/Not Resolved]
  - Conjunctivitis [Not Recovered/Not Resolved]
  - Colitis ulcerative [Recovering/Resolving]
  - Syncope [Unknown]
  - Influenza [Recovering/Resolving]
  - Nasopharyngitis [Recovering/Resolving]
